FAERS Safety Report 5064868-0 (Version None)
Quarter: 2006Q3

REPORT INFORMATION
  Report Type: 
  Country: None (occurrence: None)
  Receive Date: 20060728
  Receipt Date: 20060606
  Transmission Date: 20061208
  Serious: Yes (Hospitalization)
  Sender: FDA-Public Use
  Company Number: CN-NOVOPROD-253852

PATIENT
  Age: 56 Year
  Sex: Male
  Weight: 70 kg

DRUGS (1)
  1. NOVOLOG MIX 70/30 [Suspect]
     Indication: INSULIN-REQUIRING TYPE II DIABETES MELLITUS
     Dosage: 14+10 IU
     Dates: start: 20050815, end: 20051120

REACTIONS (7)
  - BLOOD GLUCOSE DECREASED [None]
  - COLD SWEAT [None]
  - DYSPNOEA [None]
  - PRURITUS GENERALISED [None]
  - RASH RUBELLIFORM [None]
  - SHOCK [None]
  - TREMOR [None]
